FAERS Safety Report 8574914-5 (Version None)
Quarter: 2012Q3

REPORT INFORMATION
  Report Type: 
  Country: None (occurrence: None)
  Receive Date: 20120807
  Receipt Date: 20120717
  Transmission Date: 20120928
  Serious: No
  Sender: FDA-Public Use
  Company Number: US-009507513-1207USA007749

PATIENT

DRUGS (14)
  1. IMDUR [Concomitant]
  2. TRICOR [Concomitant]
     Route: 048
  3. VICTRELIS [Suspect]
     Dosage: 1 DF, TID
  4. METOPROLOL TARTRATE [Concomitant]
     Route: 048
  5. ASPIRIN [Concomitant]
     Route: 048
  6. REBETOL [Suspect]
     Route: 048
  7. FISH OIL [Concomitant]
     Route: 048
  8. LASIX [Concomitant]
     Route: 048
  9. PEGASYS [Suspect]
     Route: 058
  10. VITAMIN B COMPLEX CAP [Concomitant]
     Route: 048
  11. HYDRALAZINE HCL [Concomitant]
     Route: 048
  12. PROCARDIA XL [Concomitant]
     Route: 048
  13. CARDURA [Concomitant]
     Route: 048
  14. CALCIUM 500 [Concomitant]
     Route: 048

REACTIONS (4)
  - CHEST DISCOMFORT [None]
  - BLOOD PRESSURE DECREASED [None]
  - DYSPNOEA [None]
  - ASTHENIA [None]
